FAERS Safety Report 10588735 (Version 1)
Quarter: 2014Q4

REPORT INFORMATION
  Report Type: Spontaneous
  Country: FR (occurrence: FR)
  Receive Date: 20141117
  Receipt Date: 20141117
  Transmission Date: 20150529
  Serious: Yes (Life-Threatening, Hospitalization, Other)
  Sender: FDA-Public Use
  Company Number: FR-GLAXOSMITHKLINE-FR2014GSK017689

PATIENT
  Age: 48 Year
  Sex: Male
  Weight: 82.5 kg

DRUGS (3)
  1. KIVEXA [Suspect]
     Active Substance: ABACAVIR SULFATE\LAMIVUDINE
     Indication: HIV INFECTION
     Dosage: 1 DF, 1D
     Route: 048
     Dates: start: 20141023
  2. INTELENCE [Concomitant]
     Active Substance: ETRAVIRINE
     Indication: HIV INFECTION
     Dosage: 200 MG, BID
     Route: 048
     Dates: start: 2007
  3. ISENTRESS [Concomitant]
     Active Substance: RALTEGRAVIR POTASSIUM
     Indication: HIV INFECTION
     Dosage: 400 MG, BID
     Route: 048
     Dates: start: 2007

REACTIONS (6)
  - Haemoglobin decreased [Unknown]
  - Haematemesis [Unknown]
  - Myocardial infarction [Recovered/Resolved with Sequelae]
  - Oesophagitis [Unknown]
  - Hypokinesia [Unknown]
  - Chest pain [Unknown]

NARRATIVE: CASE EVENT DATE: 20140623
